FAERS Safety Report 5122014-9 (Version None)
Quarter: 2006Q4

REPORT INFORMATION
  Report Type: 
  Country: None (occurrence: None)
  Receive Date: 20061003
  Receipt Date: 20060822
  Transmission Date: 20070319
  Serious: Yes (Other)
  Sender: FDA-Public Use
  Company Number: 2006-02511

PATIENT

DRUGS (2)
  1. VELCADE [Suspect]
     Indication: MULTIPLE MYELOMA
  2. THALIDOMIDE (THALIDOMIDE) [Suspect]
     Indication: MULTIPLE MYELOMA

REACTIONS (2)
  - ANTI-PLATELET ANTIBODY POSITIVE [None]
  - MYELODYSPLASTIC SYNDROME [None]
